FAERS Safety Report 8293356-3 (Version None)
Quarter: 2012Q2

REPORT INFORMATION
  Report Type: 
  Country: None (occurrence: None)
  Receive Date: 20120417
  Receipt Date: 20111013
  Transmission Date: 20120825
  Serious: No
  Sender: FDA-Public Use
  Company Number: US-ASTRAZENECA-2011SE61796

PATIENT
  Age: 58 Year
  Sex: Male
  Weight: 111.1 kg

DRUGS (7)
  1. NEXIUM [Suspect]
     Indication: GASTROINTESTINAL INFLAMMATION
     Route: 048
     Dates: start: 20110501
  2. LIPITOR [Concomitant]
     Indication: HYPERCHOLESTEROLAEMIA
  3. NEXIUM [Suspect]
     Indication: GASTRIC ULCER
     Route: 048
     Dates: start: 20110501
  4. NEXIUM [Suspect]
     Indication: OESOPHAGEAL DISORDER
     Route: 048
     Dates: start: 20110501
  5. SYNTHROID [Concomitant]
  6. NIASPAN [Concomitant]
     Indication: HYPERCHOLESTEROLAEMIA
  7. ASPIRIN [Concomitant]

REACTIONS (1)
  - THERAPEUTIC RESPONSE UNEXPECTED [None]
